FAERS Safety Report 21989868 (Version 3)
Quarter: 2025Q1

REPORT INFORMATION
  Report Type: Spontaneous
  Country: US (occurrence: US)
  Receive Date: 20230214
  Receipt Date: 20250224
  Transmission Date: 20250408
  Serious: Yes (Other)
  Sender: PFIZER
  Company Number: US-PFIZER INC-202300065560

PATIENT
  Age: 74 Year
  Sex: Female

DRUGS (18)
  1. XELJANZ XR [Suspect]
     Active Substance: TOFACITINIB CITRATE
     Indication: Rheumatoid arthritis
     Dosage: XR 11MG TABLET DAILY
     Route: 048
  2. XELJANZ XR [Suspect]
     Active Substance: TOFACITINIB CITRATE
     Dosage: 11 MG ORAL DAILY
     Route: 048
     Dates: start: 202211, end: 2024
  3. AIMOVIG [Concomitant]
     Active Substance: ERENUMAB-AOOE
  4. CYCLOBENZAPRINE [Concomitant]
     Active Substance: CYCLOBENZAPRINE
  5. LORATADINE [Concomitant]
     Active Substance: LORATADINE
  6. LYRICA [Concomitant]
     Active Substance: PREGABALIN
  7. METHOTREXATE [Concomitant]
     Active Substance: METHOTREXATE
  8. MICARDIS HCT [Concomitant]
     Active Substance: HYDROCHLOROTHIAZIDE\TELMISARTAN
  9. MONTELUKAST [Concomitant]
     Active Substance: MONTELUKAST
  10. NALOXONE [Concomitant]
     Active Substance: NALOXONE
  11. PREGABALIN [Concomitant]
     Active Substance: PREGABALIN
  12. PREMARIN [Concomitant]
     Active Substance: ESTROGENS, CONJUGATED
  13. POTASSIUM GLUCONATE [Concomitant]
     Active Substance: POTASSIUM GLUCONATE
  14. ROPINIROLE [Concomitant]
     Active Substance: ROPINIROLE
  15. TRAMADOL [Concomitant]
     Active Substance: TRAMADOL
  16. VENLAFAXINE [Concomitant]
     Active Substance: VENLAFAXINE HYDROCHLORIDE
  17. VICTOZA [Concomitant]
     Active Substance: LIRAGLUTIDE
  18. VITAMIN D2 [Concomitant]
     Active Substance: ERGOCALCIFEROL

REACTIONS (14)
  - Ankylosing spondylitis [Not Recovered/Not Resolved]
  - Glaucoma [Unknown]
  - Vitreous floaters [Unknown]
  - Vertebral column mass [Not Recovered/Not Resolved]
  - Neck mass [Not Recovered/Not Resolved]
  - Headache [Unknown]
  - Fatigue [Unknown]
  - Meniscus injury [Unknown]
  - Spinal fusion surgery [Not Recovered/Not Resolved]
  - Occipital neuralgia [Not Recovered/Not Resolved]
  - Product dose omission issue [Unknown]
  - Finger deformity [Unknown]
  - Rash [Unknown]
  - Soft tissue injury [Not Recovered/Not Resolved]

NARRATIVE: CASE EVENT DATE: 20230201
